FAERS Safety Report 8322801 (Version 6)
Quarter: 2013Q2

REPORT INFORMATION
  Report Type: Report from Study
  Country: FR (occurrence: FR)
  Receive Date: 20120105
  Receipt Date: 20130625
  Transmission Date: 20140414
  Serious: Yes (Other)
  Sender: FDA-Public Use
  Company Number: FR-CELGENEUS-056-C5013-11123111

PATIENT
  Age: 82 Year
  Sex: Male
  Weight: 67 kg

DRUGS (14)
  1. CC-5013 [Suspect]
     Indication: PLASMA CELL MYELOMA
     Dosage: 10 MILLIGRAM
     Route: 048
     Dates: start: 20090605
  2. CC-5013 [Suspect]
     Dosage: 10 MILLIGRAM
     Route: 048
     Dates: start: 20111025
  3. CC-5013 [Suspect]
     Dosage: 10 MILLIGRAM
     Route: 048
     Dates: start: 20111124
  4. DEXAMETHASONE [Suspect]
     Indication: PLASMA CELL MYELOMA
     Dosage: 20 MILLIGRAM
     Route: 065
     Dates: start: 20090605
  5. DEXAMETHASONE [Suspect]
     Dosage: 25 MILLIGRAM
     Route: 065
     Dates: start: 20111025
  6. DEXAMETHASONE [Suspect]
     Dosage: 20 MILLIGRAM
     Route: 065
     Dates: start: 20111124
  7. KARDEGIC [Concomitant]
     Indication: THROMBOSIS PROPHYLAXIS
     Dosage: 75 MILLIGRAM
     Route: 048
     Dates: start: 20090605
  8. ZOMETA [Concomitant]
     Indication: OSTEOLYSIS
     Dosage: .1333 MILLIGRAM
     Route: 041
     Dates: start: 20090625
  9. SKENAN [Concomitant]
     Indication: BONE PAIN
     Dosage: 10 MILLIGRAM
     Route: 048
     Dates: start: 20090613
  10. TEMESTA [Concomitant]
     Indication: ANXIETY
     Dosage: 1 MILLIGRAM
     Route: 048
     Dates: start: 20110413
  11. SEROPRAM [Concomitant]
     Indication: DEPRESSION
     Dosage: 20 MILLIGRAM
     Route: 048
     Dates: start: 20110802
  12. MOPRAL [Concomitant]
     Indication: GASTRITIS PROPHYLAXIS
     Dosage: 20 MILLIGRAM
     Route: 048
     Dates: start: 20090625
  13. IMOVANE [Concomitant]
     Indication: INSOMNIA
     Dosage: 10 MILLIGRAM
     Route: 048
     Dates: start: 20110902
  14. FORTIMEL [Concomitant]
     Indication: DECREASED APPETITE
     Dosage: 3 DOSAGE FORMS
     Route: 048
     Dates: start: 20110928

REACTIONS (2)
  - Lentigo maligna [Recovered/Resolved]
  - Lentigo maligna [Recovered/Resolved]
